FAERS Safety Report 6128225-8 (Version None)
Quarter: 2009Q1

REPORT INFORMATION
  Report Type: 
  Country: None (occurrence: None)
  Receive Date: 20090320
  Receipt Date: 20090320
  Transmission Date: 20090719
  Serious: No
  Sender: FDA-Public Use
  Company Number: None

PATIENT
  Sex: Female

DRUGS (1)
  1. -COMPOUNDING - ^BACLOSODOL^ 5/300 ICM [Suspect]
     Indication: BACK INJURY
     Dates: start: 20081219, end: 20090101

REACTIONS (1)
  - PRODUCT QUALITY ISSUE [None]
